FAERS Safety Report 5994417-1 (Version None)
Quarter: 2008Q4

REPORT INFORMATION
  Report Type: 
  Country: None (occurrence: None)
  Receive Date: 20081212
  Receipt Date: 20080925
  Transmission Date: 20090506
  Serious: No
  Sender: FDA-Public Use
  Company Number: US-ABBOTT-08P-163-0475186-00

PATIENT
  Sex: Male

DRUGS (2)
  1. HUMIRA [Suspect]
     Indication: CROHN'S DISEASE
     Dates: start: 20070410
  2. ESOMEPRAZOLE MAGNESIUM [Concomitant]
     Indication: DRUG USE FOR UNKNOWN INDICATION
     Route: 048

REACTIONS (8)
  - ABDOMINAL PAIN [None]
  - ARTHRALGIA [None]
  - C-REACTIVE PROTEIN INCREASED [None]
  - CROHN'S DISEASE [None]
  - DRUG DOSE OMISSION [None]
  - HEADACHE [None]
  - IMMUNOSUPPRESSION [None]
  - PYREXIA [None]
